FAERS Safety Report 5317046-1 (Version None)
Quarter: 2007Q2

REPORT INFORMATION
  Report Type: 
  Country: None (occurrence: None)
  Receive Date: 20070504
  Receipt Date: 20070423
  Transmission Date: 20071010
  Serious: Yes (Other)
  Sender: FDA-Public Use
  Company Number: US-ROCHE-489343

PATIENT
  Age: 53 Year
  Sex: Male
  Weight: 86.6 kg

DRUGS (2)
  1. PEGASYS [Suspect]
     Dosage: REPORTED AS 180 MCG WEEKLY
     Route: 058
     Dates: start: 20060726, end: 20070314
  2. COPEGUS [Suspect]
     Indication: DRUG USE FOR UNKNOWN INDICATION
     Dosage: NO FREQUENCY PROVIDED.
     Route: 065

REACTIONS (1)
  - CONVULSION [None]
